FAERS Safety Report 12301852 (Version 1)
Quarter: 2016Q2

REPORT INFORMATION
  Report Type: Spontaneous
  Country: US (occurrence: US)
  Receive Date: 20160425
  Receipt Date: 20160425
  Transmission Date: 20160815
  Serious: No
  Sender: FDA-Public Use
  Company Number: ALCN2016US002802

PATIENT
  Age: 70 Year
  Sex: Female

DRUGS (1)
  1. ILEVRO [Suspect]
     Active Substance: NEPAFENAC
     Indication: PRODUCT USED FOR UNKNOWN INDICATION
     Dosage: 1 GTT, QD
     Route: 047
     Dates: start: 201604, end: 201604

REACTIONS (2)
  - Incorrect drug administration duration [Not Recovered/Not Resolved]
  - Foreign body sensation in eyes [Unknown]

NARRATIVE: CASE EVENT DATE: 201604
